FAERS Safety Report 23648884 (Version 5)
Quarter: 2024Q2

REPORT INFORMATION
  Report Type: Spontaneous
  Country: CN (occurrence: CN)
  Receive Date: 20240319
  Receipt Date: 20240628
  Transmission Date: 20240715
  Serious: Yes (Death, Hospitalization, Other)
  Sender: FDA-Public Use
  Company Number: CN-009507513-2403CHN004056

PATIENT
  Age: 71 Year
  Sex: Male

DRUGS (1)
  1. PEMBROLIZUMAB [Suspect]
     Active Substance: PEMBROLIZUMAB
     Indication: Squamous cell carcinoma of lung
     Dosage: 200 MILLIGRAM, Q3W
     Route: 041
     Dates: start: 20230901, end: 20231215

REACTIONS (9)
  - Shock [Fatal]
  - Acute respiratory failure [Fatal]
  - Respiratory alkalosis [Fatal]
  - Immune-mediated lung disease [Not Recovered/Not Resolved]
  - General physical health deterioration [Unknown]
  - Therapy partial responder [Unknown]
  - Blood glucose increased [Unknown]
  - Decreased activity [Unknown]
  - Rest regimen [Unknown]

NARRATIVE: CASE EVENT DATE: 20240101
